FAERS Safety Report 9263268 (Version 1)
Quarter: 2013Q2

REPORT INFORMATION
  Report Type: Spontaneous
  Country: US (occurrence: US)
  Receive Date: 20130429
  Receipt Date: 20130429
  Transmission Date: 20140414
  Serious: Yes (Life-Threatening, Hospitalization, Other)
  Sender: FDA-Public Use
  Company Number: US-RB-052470-13

PATIENT
  Age: 30 Year
  Sex: Male

DRUGS (3)
  1. SUBOXONE FILM [Suspect]
     Dosage: SUBOXONE FILM
     Route: 060
     Dates: start: 20120720, end: 201210
  2. SUBOXONE FILM [Suspect]
     Indication: DRUG DEPENDENCE
     Dosage: SUBOXONE FILM; STOPPED AND RESTARTED IN THE HOSPITAL ON UNKNOWN DATE
     Route: 060
     Dates: start: 201303
  3. ZOFRAN [Suspect]
     Indication: PRODUCT USED FOR UNKNOWN INDICATION
     Dosage: UNKNOWN DOSE ONE TIME
     Route: 042
     Dates: start: 201210, end: 201210

REACTIONS (4)
  - Endocarditis bacterial [Recovered/Resolved]
  - Cardiac arrest [Recovered/Resolved]
  - Chest pain [Not Recovered/Not Resolved]
  - Troponin increased [Recovered/Resolved]
